FAERS Safety Report 17803802 (Version 1)
Quarter: 2020Q2

REPORT INFORMATION
  Report Type: Spontaneous
  Country: FR (occurrence: FR)
  Receive Date: 20200519
  Receipt Date: 20200519
  Transmission Date: 20200714
  Serious: Yes (Other)
  Sender: FDA-Public Use
  Company Number: FR-MYLANLABS-2020M1048436

PATIENT
  Age: 58 Year
  Sex: Male

DRUGS (12)
  1. REPAGLINIDE. [Suspect]
     Active Substance: REPAGLINIDE
     Indication: HYPERTENSION
  2. TRESIBA [Suspect]
     Active Substance: INSULIN DEGLUDEC
     Indication: HYPERTENSION
  3. UVEDOSE [Suspect]
     Active Substance: CHOLECALCIFEROL
     Indication: PRODUCT USED FOR UNKNOWN INDICATION
     Dosage: 1 AMPOULE (QM) MONTHLY
  4. DORAVIRINE;LAMIVUDINE;TENOFOVIR DISOPROXIL FUM [Suspect]
     Active Substance: DORAVIRINE\LAMIVUDINE\TENOFOVIR DISOPROXIL FUMARATE
     Indication: HIV INFECTION
     Dosage: 1 TABLET
     Route: 048
     Dates: start: 202001
  5. ATACAND [Suspect]
     Active Substance: CANDESARTAN CILEXETIL
     Indication: HYPERTENSION
  6. REPAGLINIDE. [Suspect]
     Active Substance: REPAGLINIDE
     Indication: DIABETES MELLITUS
     Dosage: 2 DOSAGE FORM, TID
  7. TIVICAY [Suspect]
     Active Substance: DOLUTEGRAVIR SODIUM
     Indication: PRODUCT USED FOR UNKNOWN INDICATION
     Dosage: 1 DOSAGE FORM, QD
     Dates: start: 20160503, end: 202001
  8. METFORMIN [Suspect]
     Active Substance: METFORMIN HYDROCHLORIDE
     Indication: DIABETES MELLITUS
     Dosage: 1 DOSAGE FORM, TID
  9. METFORMIN [Suspect]
     Active Substance: METFORMIN HYDROCHLORIDE
     Indication: HYPERTENSION
  10. EDURANT [Suspect]
     Active Substance: RILPIVIRINE HYDROCHLORIDE
     Indication: PRODUCT USED FOR UNKNOWN INDICATION
     Dosage: 1 DOSAGE FORM, QD
     Dates: start: 20160503, end: 202001
  11. TRESIBA [Suspect]
     Active Substance: INSULIN DEGLUDEC
     Indication: DIABETES MELLITUS
     Dosage: 160 INTERNATIONAL UNIT, QD
  12. ATACAND [Suspect]
     Active Substance: CANDESARTAN CILEXETIL
     Indication: DIABETES MELLITUS
     Dosage: 1 DOSAGE FORM, QD

REACTIONS (4)
  - Headache [Unknown]
  - Muscle rupture [Unknown]
  - Nausea [Unknown]
  - Weight increased [Unknown]
